FAERS Safety Report 13859473 (Version 1)
Quarter: 2017Q3

REPORT INFORMATION
  Report Type: Spontaneous
  Country: US (occurrence: US)
  Receive Date: 20170811
  Receipt Date: 20170811
  Transmission Date: 20171127
  Serious: No
  Sender: FDA-Public Use
  Company Number: US-PFIZER INC-2017163984

PATIENT
  Age: 52 Year
  Sex: Female

DRUGS (6)
  1. SUTENT [Suspect]
     Active Substance: SUNITINIB MALATE
     Indication: MALIGNANT NEOPLASM OF RENAL PELVIS
     Dosage: 50 MG, CYCLIC (TAKE 1 CAPSULE EVERY DAY FOR 4 WEEKS ON AND 2 WEEKS OFF)
     Route: 048
     Dates: start: 20160927
  2. AMOX/ K CLAV [Concomitant]
     Dosage: 875 MG, UNK
  3. KETOCONAZOLE. [Concomitant]
     Active Substance: KETOCONAZOLE
     Dosage: UNK
  4. LEVOTHYROXIN [Concomitant]
     Active Substance: LEVOTHYROXINE
     Dosage: 75 UG, UNK
  5. ALBUTEROL. [Concomitant]
     Active Substance: ALBUTEROL
     Dosage: UNK
  6. CIPROFLOXACIN. [Concomitant]
     Active Substance: CIPROFLOXACIN
     Dosage: 500 MG, UNK

REACTIONS (1)
  - Neoplasm progression [Not Recovered/Not Resolved]
